FAERS Safety Report 7681394-0 (Version None)
Quarter: 2011Q3

REPORT INFORMATION
  Report Type: 
  Country: None (occurrence: None)
  Receive Date: 20110812
  Receipt Date: 20110811
  Transmission Date: 20111222
  Serious: Yes (Hospitalization)
  Sender: FDA-Public Use
  Company Number: DE-UCBSA-002223

PATIENT
  Sex: Female
  Weight: 63 kg

DRUGS (4)
  1. GABAPENTIN [Concomitant]
     Indication: EPILEPSY
     Route: 048
  2. VIMPAT [Suspect]
     Dosage: 50MG
     Route: 048
     Dates: start: 20091031, end: 20091106
  3. VIMPAT [Suspect]
     Route: 048
     Dates: start: 20091028
  4. VIMPAT [Suspect]
     Indication: EPILEPSY
     Route: 048
     Dates: start: 20091003

REACTIONS (3)
  - DEPRESSION [None]
  - ANXIETY DISORDER [None]
  - SOMATOFORM DISORDER [None]
